FAERS Safety Report 15354706 (Version 2)
Quarter: 2018Q4

REPORT INFORMATION
  Report Type: Report from Study
  Country: US (occurrence: US)
  Receive Date: 20180906
  Receipt Date: 20181016
  Transmission Date: 20190204
  Serious: Yes (Other)
  Sender: FDA-Public Use
  Company Number: PHEH2018US036123

PATIENT
  Sex: Female

DRUGS (2)
  1. COSENTYX [Suspect]
     Active Substance: SECUKINUMAB
     Indication: ANKYLOSING SPONDYLITIS
     Route: 058
  2. COSENTYX [Suspect]
     Active Substance: SECUKINUMAB
     Indication: PSORIASIS

REACTIONS (9)
  - Ocular discomfort [Unknown]
  - Pain [Unknown]
  - Dyschezia [Unknown]
  - Fatigue [Unknown]
  - Haematochezia [Unknown]
  - Diarrhoea [Unknown]
  - Sinusitis [Unknown]
  - Muscle spasms [Unknown]
  - Head discomfort [Unknown]
